FAERS Safety Report 22400298 (Version 1)
Quarter: 2023Q2

REPORT INFORMATION
  Report Type: Spontaneous
  Country: MX (occurrence: None)
  Receive Date: 20230602
  Receipt Date: 20230602
  Transmission Date: 20230721
  Serious: Yes (Hospitalization, Other)
  Sender: FDA-Public Use
  Company Number: 2023A048778

PATIENT
  Age: 68 Year
  Sex: Female

DRUGS (1)
  1. OLAPARIB [Suspect]
     Active Substance: OLAPARIB
     Indication: Ovarian cancer
     Route: 048
     Dates: start: 20221229

REACTIONS (4)
  - Anaemia [Recovering/Resolving]
  - Metastases to peritoneum [Unknown]
  - Cutaneous vasculitis [Unknown]
  - Eastern Cooperative Oncology Group performance status [Unknown]

NARRATIVE: CASE EVENT DATE: 20221229
